FAERS Safety Report 18546734 (Version 1)
Quarter: 2020Q4

REPORT INFORMATION
  Report Type: Spontaneous
  Country: IT (occurrence: IT)
  Receive Date: 20201125
  Receipt Date: 20201125
  Transmission Date: 20210114
  Serious: Yes (Other)
  Sender: FDA-Public Use
  Company Number: IT-ELI_LILLY_AND_COMPANY-IT202010013433

PATIENT
  Age: 68 Year
  Sex: Male
  Weight: 85 kg

DRUGS (1)
  1. PEMETREXED. [Suspect]
     Active Substance: PEMETREXED
     Indication: LUNG ADENOCARCINOMA
     Dosage: 500 MG, CYCLICAL
     Route: 042
     Dates: start: 20161121, end: 20191004

REACTIONS (1)
  - Nephropathy [Recovering/Resolving]

NARRATIVE: CASE EVENT DATE: 20191108
